FAERS Safety Report 9675487 (Version 1)
Quarter: 2013Q4

REPORT INFORMATION
  Report Type: Spontaneous
  Country: US (occurrence: US)
  Receive Date: 20131107
  Receipt Date: 20131107
  Transmission Date: 20140711
  Serious: Yes (Hospitalization, Other)
  Sender: FDA-Public Use
  Company Number: US-MYLANLABS-2013S1024291

PATIENT
  Age: 2 Year
  Sex: Male

DRUGS (1)
  1. GUANFACINE [Suspect]
     Indication: ACCIDENTAL EXPOSURE TO PRODUCT BY CHILD
     Route: 048

REACTIONS (6)
  - Accidental exposure to product by child [Recovered/Resolved]
  - Toxicity to various agents [Recovered/Resolved]
  - Somnolence [Recovered/Resolved]
  - Bradycardia [Recovered/Resolved]
  - Miosis [Recovered/Resolved]
  - Hypertension [Recovered/Resolved]
